FAERS Safety Report 19259814 (Version 1)
Quarter: 2021Q2

REPORT INFORMATION
  Report Type: Report from Study
  Country: US (occurrence: US)
  Receive Date: 20210514
  Receipt Date: 20210514
  Transmission Date: 20210717
  Serious: Yes (Other)
  Sender: FDA-Public Use
  Company Number: US-EXELIXIS-CABO-21038168

PATIENT
  Sex: Male

DRUGS (2)
  1. CABOMETYX [Suspect]
     Active Substance: CABOZANTINIB S-MALATE
     Indication: RENAL CELL CARCINOMA
     Dosage: 40 MG, QD
     Dates: start: 20210122, end: 20210205
  2. CABOMETYX [Suspect]
     Active Substance: CABOZANTINIB S-MALATE
     Dosage: 40 MG, QD
     Dates: start: 20210406

REACTIONS (7)
  - Coronary artery disease [Unknown]
  - Taste disorder [Unknown]
  - Decreased appetite [Unknown]
  - Stomatitis [Unknown]
  - Impaired healing [Unknown]
  - Constipation [Recovered/Resolved]
  - Fatigue [Unknown]
